FAERS Safety Report 25707654 (Version 4)
Quarter: 2025Q4

REPORT INFORMATION
  Report Type: Report from Study
  Country: CO (occurrence: CO)
  Receive Date: 20250820
  Receipt Date: 20251231
  Transmission Date: 20260117
  Serious: Yes (Life-Threatening)
  Sender: TAKEDA
  Company Number: CO-TAKEDA-CO201908833

PATIENT
  Age: 33 Year
  Sex: Female
  Weight: 77 kg

DRUGS (15)
  1. ICATIBANT [Suspect]
     Active Substance: ICATIBANT ACETATE
     Indication: Hereditary angioedema
     Dosage: 30 MILLIGRAM
     Dates: start: 20190307, end: 20190307
  2. ICATIBANT [Suspect]
     Active Substance: ICATIBANT ACETATE
     Dosage: 30 MILLIGRAM
     Dates: start: 20190325, end: 20190325
  3. ICATIBANT [Suspect]
     Active Substance: ICATIBANT ACETATE
     Dosage: 30 MILLIGRAM
     Dates: start: 20190422, end: 20190422
  4. ICATIBANT [Suspect]
     Active Substance: ICATIBANT ACETATE
     Dosage: 30 MILLIGRAM
     Dates: start: 20190526, end: 20190526
  5. ICATIBANT [Suspect]
     Active Substance: ICATIBANT ACETATE
     Dosage: 30 MILLIGRAM
     Dates: start: 20190704, end: 20190704
  6. ICATIBANT [Suspect]
     Active Substance: ICATIBANT ACETATE
     Dosage: 30 MILLIGRAM
     Dates: start: 20190815, end: 20190815
  7. ICATIBANT [Suspect]
     Active Substance: ICATIBANT ACETATE
     Dosage: UNK
  8. ICATIBANT [Suspect]
     Active Substance: ICATIBANT ACETATE
     Dosage: UNK UNK, Q6HR
  9. ICATIBANT [Suspect]
     Active Substance: ICATIBANT ACETATE
     Dosage: 30 MILLIGRAM
  10. ICATIBANT [Suspect]
     Active Substance: ICATIBANT ACETATE
     Dosage: UNK
  11. TAKHZYRO [Suspect]
     Active Substance: LANADELUMAB-FLYO
     Indication: Hereditary angioedema
     Dosage: 300 MILLIGRAM, Q2WEEKS
     Dates: start: 20231026
  12. TAKHZYRO [Suspect]
     Active Substance: LANADELUMAB-FLYO
     Dosage: 300 MILLIGRAM, Q2WEEKS
  13. TAKHZYRO [Suspect]
     Active Substance: LANADELUMAB-FLYO
     Dosage: 300 MILLIGRAM, 2/MONTH
  14. ICATIBANT ACETATE [Concomitant]
     Active Substance: ICATIBANT ACETATE
     Dosage: 30MG/3ML
  15. ICATIBANT ACETATE [Concomitant]
     Active Substance: ICATIBANT ACETATE
     Dosage: 30MG/3ML

REACTIONS (18)
  - Influenza [Recovered/Resolved]
  - Hereditary angioedema [Recovered/Resolved]
  - Animal bite [Unknown]
  - Skin laceration [Unknown]
  - Insurance issue [Unknown]
  - Product availability issue [Unknown]
  - Chills [Unknown]
  - Secretion discharge [Unknown]
  - Pain [Unknown]
  - Inappropriate schedule of product administration [Unknown]
  - Influenza like illness [Recovering/Resolving]
  - Product use issue [Unknown]
  - Weight decreased [Unknown]
  - Weight increased [Unknown]
  - Body height decreased [Unknown]
  - Treatment noncompliance [Not Recovered/Not Resolved]
  - Product distribution issue [Unknown]
  - Product dose omission issue [Unknown]

NARRATIVE: CASE EVENT DATE: 20230318
